FAERS Safety Report 6035803-3 (Version None)
Quarter: 2009Q1

REPORT INFORMATION
  Report Type: 
  Country: None (occurrence: None)
  Receive Date: 20090113
  Receipt Date: 20081215
  Transmission Date: 20090719
  Serious: Yes (Hospitalization)
  Sender: FDA-Public Use
  Company Number: AU-PFIZER INC-2008157920

PATIENT

DRUGS (7)
  1. LIPITOR [Suspect]
     Indication: METABOLIC DISORDER
     Dosage: 40 MG, 1X/DAY
     Route: 048
     Dates: end: 20060525
  2. DIAMICRON [Suspect]
     Indication: METABOLIC DISORDER
     Dosage: 240 MG, 1X/DAY
     Route: 048
     Dates: end: 20060525
  3. AMOXICILLIN SODIUM [Suspect]
     Dosage: 2 G, 1X/DAY
     Route: 048
     Dates: start: 20060517, end: 20060522
  4. KLACID [Suspect]
     Dosage: 1 G, 1X/DAY
     Route: 048
     Dates: start: 20060517, end: 20060522
  5. METFORMIN HYDROCHLORIDE [Suspect]
     Indication: DIABETES MELLITUS
     Dosage: 1 G, 3X/DAY
     Dates: end: 20060525
  6. OMEPRAZOLE [Suspect]
     Route: 048
     Dates: start: 20060517, end: 20060522
  7. TIMENTIN [Suspect]
     Dosage: 12.4 G, 1X/DAY
     Route: 042
     Dates: start: 20060520, end: 20060523

REACTIONS (1)
  - PERIVASCULAR DERMATITIS [None]
